FAERS Safety Report 11466120 (Version 1)
Quarter: 2015Q3

REPORT INFORMATION
  Report Type: Spontaneous
  Country: US (occurrence: US)
  Receive Date: 20150907
  Receipt Date: 20150907
  Transmission Date: 20151125
  Serious: Yes (Other)
  Sender: FDA-Public Use
  Company Number: US-TAKEDA-2014TUS011363

PATIENT

DRUGS (20)
  1. METFORMIN [Concomitant]
     Active Substance: METFORMIN HYDROCHLORIDE
     Dosage: UNK
     Dates: start: 20101025, end: 20110201
  2. GLUCOVANCE [Concomitant]
     Active Substance: GLYBURIDE\METFORMIN HYDROCHLORIDE
     Dosage: UNK
     Dates: start: 2011
  3. NOVOLOG [Concomitant]
     Active Substance: INSULIN ASPART
     Indication: DIABETES MELLITUS
     Dosage: 6 IU, TID
     Dates: start: 20120710, end: 20130311
  4. AGGRENOX [Concomitant]
     Active Substance: ASPIRIN\DIPYRIDAMOLE
     Dosage: ONE TAB TWO TIMES OR 200 - 25 MG CAPSULES
     Dates: start: 20040910, end: 200410
  5. NOVOLOG [Concomitant]
     Active Substance: INSULIN ASPART
     Dosage: 10 UNITS AM, 10 UNITS LUNCH AND 10 UNITS PM
     Dates: start: 20140609
  6. EMPIRIN COMPOUND [Concomitant]
     Dosage: UNK
  7. LANTUS [Concomitant]
     Active Substance: INSULIN GLARGINE
     Dosage: 5 IU, TID
     Dates: start: 20110412
  8. LANTUS [Concomitant]
     Active Substance: INSULIN GLARGINE
     Dosage: 35 IU, QD
     Dates: start: 20110921
  9. GLUCOTROL XL [Concomitant]
     Active Substance: GLIPIZIDE
     Dosage: 10 MG TWO TIMES OR 5 MG FOUR TIMES A DAY
     Dates: start: 20110225, end: 20111013
  10. JANUVIA [Concomitant]
     Active Substance: SITAGLIPTIN PHOSPHATE
     Dosage: 100 MG, UNK
     Dates: start: 20070530, end: 200901
  11. ASPIRIN. [Concomitant]
     Active Substance: ASPIRIN
     Dosage: 81 MG, UNK
     Dates: start: 20100712
  12. LANTUS [Concomitant]
     Active Substance: INSULIN GLARGINE
     Dosage: 55 IU, UNK
     Dates: start: 20120424
  13. GLUCOTROL XL [Concomitant]
     Active Substance: GLIPIZIDE
     Dosage: 5 MG TABS IN AM
     Dates: start: 20110921
  14. JANUVIA [Concomitant]
     Active Substance: SITAGLIPTIN PHOSPHATE
     Dosage: 50 MG, UNK
     Dates: start: 20090219, end: 201201
  15. JANUVIA [Concomitant]
     Active Substance: SITAGLIPTIN PHOSPHATE
     Dosage: 100 MG, UNK
     Dates: start: 200903, end: 200907
  16. DIABETA                            /00145301/ [Concomitant]
     Dosage: DIABETA 5MG, DOSE: 5 OZ TWO TIMES A DAY OR 0.5 MG FOUR TIMES A DAY
     Dates: start: 20031223, end: 20101025
  17. GLUCOTROL XL [Concomitant]
     Active Substance: GLIPIZIDE
     Dosage: 5 MG, QID
     Dates: start: 20110401
  18. ACTOS [Suspect]
     Active Substance: PIOGLITAZONE HYDROCHLORIDE
     Indication: TYPE 2 DIABETES MELLITUS
     Dosage: 15 MG, UNK
     Route: 048
     Dates: start: 20031223, end: 20050120
  19. REGULAR INSULIN [Concomitant]
     Active Substance: INSULIN NOS
     Dosage: ON SLIDING, UNK
     Dates: start: 201010
  20. NOVOLOG [Concomitant]
     Active Substance: INSULIN ASPART
     Dosage: 15 IU, TID
     Dates: start: 20140209, end: 20140707

REACTIONS (1)
  - Bladder cancer [Unknown]

NARRATIVE: CASE EVENT DATE: 201310
